FAERS Safety Report 16387891 (Version 1)
Quarter: 2019Q2

REPORT INFORMATION
  Report Type: Spontaneous
  Country: FR (occurrence: FR)
  Receive Date: 20190604
  Receipt Date: 20190604
  Transmission Date: 20190711
  Serious: Yes (Life-Threatening, Hospitalization, Other)
  Sender: FDA-Public Use
  Company Number: FR-SA-2019SA139542

PATIENT
  Age: 50 Year
  Sex: Male
  Weight: 80 kg

DRUGS (5)
  1. CICLOSPORIN [Suspect]
     Active Substance: CYCLOSPORINE
     Dosage: UNK
  2. METHOTREXATE. [Suspect]
     Active Substance: METHOTREXATE
     Indication: DERMATITIS ATOPIC
     Dosage: UNK
  3. DUPILUMAB [Suspect]
     Active Substance: DUPILUMAB
     Dosage: 300 MG, QOW
  4. DUPILUMAB [Suspect]
     Active Substance: DUPILUMAB
     Indication: DERMATITIS ATOPIC
     Dosage: 600 MG
     Route: 058
     Dates: start: 20180214, end: 20180214
  5. BUDESONIDE/FORMOTEROL FUMARATE [Suspect]
     Active Substance: BUDESONIDE\FORMOTEROL FUMARATE
     Indication: ASTHMA
     Dosage: 2 PUFF, 2 TIMES PER DAY
     Route: 048
     Dates: start: 20150101

REACTIONS (4)
  - Squamous cell carcinoma [Not Recovered/Not Resolved]
  - Epistaxis [Not Recovered/Not Resolved]
  - Skin cancer [Not Recovered/Not Resolved]
  - Tissue injury [Not Recovered/Not Resolved]

NARRATIVE: CASE EVENT DATE: 201904
